FAERS Safety Report 14350061 (Version 1)
Quarter: 2018Q1

REPORT INFORMATION
  Report Type: Spontaneous
  Country: US (occurrence: US)
  Receive Date: 20180103
  Receipt Date: 20180103
  Transmission Date: 20180509
  Serious: Yes (Disabling)
  Sender: FDA-Public Use
  Company Number: None

PATIENT
  Age: 43 Year
  Sex: Female
  Weight: 94.95 kg

DRUGS (1)
  1. METHYLPHENIDATE ER 36 MG TABLET, TL 708 [Suspect]
     Active Substance: METHYLPHENIDATE HYDROCHLORIDE
     Indication: ATTENTION DEFICIT/HYPERACTIVITY DISORDER
     Dosage: ?          QUANTITY:1 TABLET(S);?
     Route: 048
     Dates: start: 20171208, end: 20180103

REACTIONS (6)
  - Feeling abnormal [None]
  - Impaired work ability [None]
  - Product substitution issue [None]
  - Drug ineffective [None]
  - Inability to afford medication [None]
  - Irritability [None]

NARRATIVE: CASE EVENT DATE: 20171208
